FAERS Safety Report 8873288 (Version 3)
Quarter: 2013Q3

REPORT INFORMATION
  Report Type: Spontaneous
  Country: US (occurrence: US)
  Receive Date: 20121023
  Receipt Date: 20130717
  Transmission Date: 20140515
  Serious: Yes (Hospitalization, Other)
  Sender: FDA-Public Use
  Company Number: US-009507513-1204USA01066

PATIENT
  Sex: Female
  Weight: 77.98 kg

DRUGS (2)
  1. FOSAMAX [Suspect]
     Indication: OSTEOPOROSIS
     Dosage: 10 MG, QD
     Route: 048
     Dates: start: 199603, end: 200108
  2. FOSAMAX [Suspect]
     Indication: OSTEOPENIA
     Dosage: 70 MG, QW
     Route: 048
     Dates: start: 200108, end: 200609

REACTIONS (15)
  - Femur fracture [Unknown]
  - Intramedullary rod insertion [Unknown]
  - Atrial flutter [Unknown]
  - Depression [Unknown]
  - Cataract [Unknown]
  - Haemorrhoid operation [Unknown]
  - Genital labial operation [Unknown]
  - Dyspnoea exertional [Unknown]
  - Spinal osteoarthritis [Unknown]
  - Colon adenoma [Unknown]
  - Intestinal polypectomy [Unknown]
  - Postmenopausal haemorrhage [Unknown]
  - Supraventricular tachycardia [Unknown]
  - Vestibular neuronitis [Unknown]
  - Diabetes mellitus [Unknown]
